FAERS Safety Report 8961535 (Version 2)
Quarter: 2013Q2

REPORT INFORMATION
  Report Type: Report from Study
  Country: US (occurrence: US)
  Receive Date: 20121213
  Receipt Date: 20130409
  Transmission Date: 20140414
  Serious: Yes (Life-Threatening, Hospitalization)
  Sender: FDA-Public Use
  Company Number: US-UCBSA-071950

PATIENT
  Age: 51 Year
  Sex: Male
  Weight: 185 kg

DRUGS (10)
  1. CERTOLIZUMAB PEGOL [Suspect]
     Indication: RHEUMATOID ARTHRITIS
     Dosage: 1 CC
     Route: 058
     Dates: start: 20111221
  2. METHOTREXATE [Concomitant]
     Indication: RHEUMATOID ARTHRITIS
     Dates: start: 20111005
  3. METHOTREXATE [Concomitant]
     Indication: RHEUMATOID ARTHRITIS
     Dosage: 8 TABS ONCE DAILY
  4. HUMIRA [Concomitant]
     Indication: RHEUMATOID ARTHRITIS
  5. NAPROSYN [Concomitant]
     Indication: RHEUMATOID ARTHRITIS
     Dates: start: 20110823
  6. FOLATE [Concomitant]
     Indication: RHEUMATOID ARTHRITIS
     Dates: start: 20111005
  7. PREDNISONE [Concomitant]
     Indication: RHEUMATOID ARTHRITIS
     Dates: start: 20111012, end: 20120624
  8. PREDNISONE [Concomitant]
     Indication: RHEUMATOID ARTHRITIS
     Dates: start: 20120625, end: 20120707
  9. PREDNISONE [Concomitant]
     Indication: RHEUMATOID ARTHRITIS
     Dates: start: 20120708, end: 20120722
  10. PREDNISONE [Concomitant]
     Indication: RHEUMATOID ARTHRITIS
     Dates: start: 2012

REACTIONS (5)
  - Cardiac arrest [Recovered/Resolved]
  - Myocardial infarction [Recovered/Resolved]
  - Cardiogenic shock [Recovered/Resolved]
  - Respiratory failure [Recovered/Resolved]
  - Staphylococcal infection [Not Recovered/Not Resolved]
